FAERS Safety Report 23905367 (Version 1)
Quarter: 2024Q2

REPORT INFORMATION
  Report Type: Spontaneous
  Country: RO (occurrence: None)
  Receive Date: 20240527
  Receipt Date: 20240527
  Transmission Date: 20240715
  Serious: Yes (Death, Life-Threatening, Other)
  Sender: FDA-Public Use
  Company Number: 2024A119414

PATIENT
  Age: 63 Year
  Sex: Female

DRUGS (24)
  1. FULVESTRANT [Suspect]
     Active Substance: FULVESTRANT
     Indication: Metastasis
     Dosage: UNKNOWN
  2. PALBOCICLIB [Suspect]
     Active Substance: PALBOCICLIB
     Indication: Metastasis
     Dates: start: 202206
  3. PALBOCICLIB [Suspect]
     Active Substance: PALBOCICLIB
     Indication: Metastasis
     Dates: start: 202206
  4. PALBOCICLIB [Suspect]
     Active Substance: PALBOCICLIB
     Indication: Metastasis
     Dates: start: 202206
  5. PALBOCICLIB [Suspect]
     Active Substance: PALBOCICLIB
     Indication: Metastasis
     Dosage: 21 DAYS IN A 28 DAY CYCLE
     Dates: start: 201808, end: 202203
  6. PALBOCICLIB [Suspect]
     Active Substance: PALBOCICLIB
     Indication: Metastasis
     Dosage: 21 DAYS IN A 28 DAY CYCLE
     Dates: start: 201808, end: 202203
  7. PALBOCICLIB [Suspect]
     Active Substance: PALBOCICLIB
     Indication: Metastasis
     Dosage: 21 DAYS IN A 28 DAY CYCLE
     Dates: start: 201808, end: 202203
  8. PALBOCICLIB [Suspect]
     Active Substance: PALBOCICLIB
     Indication: Metastasis
     Dosage: 21 DAYS IN A 28 DAY CYCLE
     Dates: start: 201808, end: 201905
  9. PALBOCICLIB [Suspect]
     Active Substance: PALBOCICLIB
     Indication: Metastasis
     Dosage: 21 DAYS IN A 28 DAY CYCLE
     Dates: start: 201808, end: 201905
  10. PALBOCICLIB [Suspect]
     Active Substance: PALBOCICLIB
     Indication: Metastasis
     Dosage: 21 DAYS IN A 28 DAY CYCLE
     Dates: start: 201808, end: 201905
  11. PACLITAXEL [Suspect]
     Active Substance: PACLITAXEL
     Indication: Breast cancer
     Dosage: 90 MG/M2 DAY 1,8,15, Q4W UNKNOWN
  12. CALCIUM CARBONATE\CHOLECALCIFEROL\ZOLEDRONIC ACID [Suspect]
     Active Substance: CALCIUM CARBONATE\CHOLECALCIFEROL\ZOLEDRONIC ACID
     Indication: Metastasis
     Dosage: 4 MG Q3-4W UNKNOWN
  13. PEGFILGRASTIM [Suspect]
     Active Substance: PEGFILGRASTIM
     Indication: Prophylaxis
     Dosage: UNKNOWN
  14. LETROZOLE [Suspect]
     Active Substance: LETROZOLE
     Indication: Metastasis
     Dates: start: 201808, end: 201905
  15. LETROZOLE [Suspect]
     Active Substance: LETROZOLE
     Indication: Metastasis
     Dates: start: 201808, end: 201905
  16. LETROZOLE [Suspect]
     Active Substance: LETROZOLE
     Indication: Metastasis
     Dates: start: 201808, end: 201905
  17. LETROZOLE [Suspect]
     Active Substance: LETROZOLE
     Indication: Metastasis
     Dates: start: 202206
  18. LETROZOLE [Suspect]
     Active Substance: LETROZOLE
     Indication: Metastasis
     Dates: start: 202206
  19. LETROZOLE [Suspect]
     Active Substance: LETROZOLE
     Indication: Metastasis
     Dates: start: 202206
  20. LETROZOLE [Suspect]
     Active Substance: LETROZOLE
     Indication: Metastasis
     Dates: start: 201808, end: 202203
  21. LETROZOLE [Suspect]
     Active Substance: LETROZOLE
     Indication: Metastasis
     Dates: start: 201808, end: 202203
  22. LETROZOLE [Suspect]
     Active Substance: LETROZOLE
     Indication: Metastasis
     Dates: start: 201808, end: 202203
  23. ALPELISIB [Suspect]
     Active Substance: ALPELISIB
     Indication: Metastasis
     Dosage: UNKNOWN
  24. DOCETAXEL [Suspect]
     Active Substance: DOCETAXEL\DOCETAXEL ANHYDROUS
     Indication: Metastasis
     Dosage: 75 MG/M2 Q3W
     Dates: start: 201802, end: 201808

REACTIONS (5)
  - Thrombocytopenia [Recovered/Resolved]
  - Neuropathy peripheral [Unknown]
  - Febrile neutropenia [Unknown]
  - Death [Fatal]
  - Malignant neoplasm progression [Unknown]

NARRATIVE: CASE EVENT DATE: 20230601
